FAERS Safety Report 5341350-4 (Version None)
Quarter: 2007Q2

REPORT INFORMATION
  Report Type: 
  Country: None (occurrence: None)
  Receive Date: 20070530
  Receipt Date: 20070413
  Transmission Date: 20071010
  Serious: Yes (Other)
  Sender: FDA-Public Use
  Company Number: DILUS-07-0346

PATIENT
  Age: 12 Year
  Sex: Male
  Weight: 45.4 kg

DRUGS (11)
  1. DIPRIVAN [Suspect]
     Indication: SEDATION
     Dosage: SEE IMAGE, INTRAVENOUS
     Route: 042
  2. ALBUTEROL/ATROVENT (SALBUTAMOL) [Concomitant]
  3. FLUTICASONE/SALMETEROL (GALENIC/FLUTICASONE/SALMETEROL/) [Concomitant]
  4. MONTELUKAST (MONTELUKAST) [Concomitant]
  5. CETIRIZINE HCL [Concomitant]
  6. TRIAMCINOLONE [Concomitant]
  7. LANSOPRAZOLE [Concomitant]
  8. RANITIDINE [Concomitant]
  9. LIDOCAINE [Concomitant]
  10. RINGERS INJECTION IN PLASTIC CONTAINER [Concomitant]
  11. FENTANYL [Concomitant]

REACTIONS (1)
  - RETROGRADE AMNESIA [None]
